FAERS Safety Report 4712958-1 (Version None)
Quarter: 2005Q3

REPORT INFORMATION
  Report Type: 
  Country: None (occurrence: None)
  Receive Date: 20050711
  Receipt Date: 20050628
  Transmission Date: 20060218
  Serious: Yes (Hospitalization)
  Sender: FDA-Public Use
  Company Number: 700533

PATIENT
  Age: 54 Year
  Sex: Male
  Weight: 53 kg

DRUGS (19)
  1. EXTRANEAL [Suspect]
     Indication: PERITONEAL DIALYSIS
     Dosage: 2 L; EVERY DAY; IP
     Route: 033
     Dates: start: 20030818
  2. DIANEAL PD4 ULTRABAG [Concomitant]
  3. DIANEAL PD4 ULTRABAG [Concomitant]
  4. CALCIUM CARBONATE [Concomitant]
  5. TEPRENONE [Concomitant]
  6. MOSAPRIDE CITRATE [Concomitant]
  7. GUANABENZ ACETATE [Concomitant]
  8. LAFUTIDINE [Concomitant]
  9. AMLODIPINE BESYLATE [Concomitant]
  10. CANDESARTAN CILEXETIL [Concomitant]
  11. CALCITRIOL [Concomitant]
  12. PYRIDOXAL PHOSPHATE [Concomitant]
  13. TRIAZOLAM [Concomitant]
  14. PURSENNIDE [Concomitant]
  15. FLUVOXAMINE MALEATE [Concomitant]
  16. DOMPERIDONE [Concomitant]
  17. METOPROLOL TARTRATE [Concomitant]
  18. CANDESARTAN CILEXETIL [Concomitant]
  19. CLONAZEPAM [Concomitant]

REACTIONS (8)
  - ABDOMINAL PAIN [None]
  - BRONCHITIS ACUTE [None]
  - HENOCH-SCHONLEIN PURPURA [None]
  - HYPOPROTEINAEMIA [None]
  - NASOPHARYNGITIS [None]
  - OEDEMA [None]
  - OSTEOARTHRITIS [None]
  - VOMITING [None]
